FAERS Safety Report 24845095 (Version 1)
Quarter: 2025Q1

REPORT INFORMATION
  Report Type: Spontaneous
  Country: US (occurrence: None)
  Receive Date: 20250114
  Receipt Date: 20250114
  Transmission Date: 20250408
  Serious: Yes (Hospitalization)
  Sender: FDA-CTU
  Company Number: None

PATIENT
  Age: 72 Year
  Sex: Male
  Weight: 86 kg

DRUGS (3)
  1. ALLOPURINOL [Suspect]
     Active Substance: ALLOPURINOL
     Indication: Gout
     Dosage: FREQUENCY : DAILY;?
     Route: 048
     Dates: end: 20240712
  2. JARDIANCE [Suspect]
     Active Substance: EMPAGLIFLOZIN
  3. ENTRESTO [Suspect]
     Active Substance: SACUBITRIL\VALSARTAN

REACTIONS (7)
  - Eosinophilia [None]
  - Rash macular [None]
  - Erysipelas [None]
  - Dry skin [None]
  - Skin exfoliation [None]
  - Cellulitis [None]
  - Oedema peripheral [None]

NARRATIVE: CASE EVENT DATE: 20240712
